FAERS Safety Report 5676006-1 (Version None)
Quarter: 2008Q1

REPORT INFORMATION
  Report Type: 
  Country: None (occurrence: None)
  Receive Date: 20080318
  Receipt Date: 20080307
  Transmission Date: 20080703
  Serious: Yes (Hospitalization)
  Sender: FDA-Public Use
  Company Number: 2008-01737

PATIENT
  Age: 59 Year
  Sex: Male

DRUGS (9)
  1. COLCHICUM JTL LIQ [Suspect]
     Indication: GOUT
     Dosage: 0.6 MG, BID, ORAL
     Route: 048
     Dates: start: 19960901
  2. DIGOXIN [Concomitant]
  3. VERAPAMIL [Concomitant]
  4. ACETYLSALICYLIC ACID ENTERIC COATED (ACETYLSALICYLIC ACID) [Concomitant]
  5. THEOPHYLLINE [Concomitant]
  6. METAPROTERENOL SULFATE (ORCIPRENALINE SULFATE) [Concomitant]
  7. IPRATROPIUM BROMIDE [Concomitant]
  8. TRIAMCINOLONE ACETONIDE [Concomitant]
  9. INDOMETHACIN [Concomitant]

REACTIONS (1)
  - RHABDOMYOLYSIS [None]
